FAERS Safety Report 14392727 (Version 2)
Quarter: 2018Q1

REPORT INFORMATION
  Report Type: Report from Study
  Country: US (occurrence: US)
  Receive Date: 20180116
  Receipt Date: 20180117
  Transmission Date: 20180509
  Serious: Yes (Other)
  Sender: FDA-Public Use
  Company Number: US-ASTRAZENECA-2017SF24140

PATIENT
  Age: 21388 Day
  Sex: Female

DRUGS (1)
  1. IMFINZI [Suspect]
     Active Substance: DURVALUMAB
     Route: 042
     Dates: start: 20171117

REACTIONS (7)
  - Pancreatitis [Unknown]
  - Hyperthyroidism [Unknown]
  - Alopecia [Not Recovered/Not Resolved]
  - Fatigue [Unknown]
  - Abdominal pain [Recovered/Resolved]
  - Somnolence [Unknown]
  - Hypothyroidism [Not Recovered/Not Resolved]

NARRATIVE: CASE EVENT DATE: 20171201
